FAERS Safety Report 6445721-4 (Version None)
Quarter: 2009Q4

REPORT INFORMATION
  Report Type: 
  Country: None (occurrence: None)
  Receive Date: 20091118
  Receipt Date: 20091118
  Transmission Date: 20100525
  Serious: Yes (Life-Threatening)
  Sender: FDA-Public Use
  Company Number: None

PATIENT
  Age: 69 Year
  Sex: Male
  Weight: 70.3075 kg

DRUGS (1)
  1. HALDOL [Suspect]
     Indication: ANXIETY
     Dosage: 0.5 ONE TABLET MOUTH
     Route: 048
     Dates: start: 20090105

REACTIONS (3)
  - HOMICIDAL IDEATION [None]
  - PHYSICAL ASSAULT [None]
  - SUICIDAL IDEATION [None]
